FAERS Safety Report 6921608-5 (Version None)
Quarter: 2010Q3

REPORT INFORMATION
  Report Type: 
  Country: None (occurrence: None)
  Receive Date: 20100812
  Receipt Date: 20100805
  Transmission Date: 20110219
  Serious: Yes (Hospitalization, Other)
  Sender: FDA-Public Use
  Company Number: US-MERCK-0705USA02808

PATIENT
  Age: 74 Year
  Sex: Female

DRUGS (5)
  1. FOSAMAX [Suspect]
     Indication: OSTEOPOROSIS
     Route: 048
     Dates: start: 20020415, end: 20040701
  2. FOSAMAX [Suspect]
     Route: 048
     Dates: end: 20060401
  3. [THERAPY UNSPECIFIED] [Concomitant]
     Route: 065
     Dates: start: 20010501
  4. INDERAL [Concomitant]
     Indication: BLOOD PRESSURE
     Route: 065
     Dates: start: 20020401, end: 20060301
  5. INDAPAMIDE [Concomitant]
     Indication: BLOOD PRESSURE
     Route: 065
     Dates: start: 19930301

REACTIONS (37)
  - ABSCESS NECK [None]
  - ACTINIC ELASTOSIS [None]
  - ATRIAL FIBRILLATION [None]
  - BLOOD CALCIUM INCREASED [None]
  - BONE LESION [None]
  - CARDIAC DISORDER [None]
  - CELLULITIS [None]
  - DYSPHAGIA [None]
  - DYSPLASIA [None]
  - EYE DISORDER [None]
  - GASTROINTESTINAL DISORDER [None]
  - HELICOBACTER INFECTION [None]
  - HYPERKERATOSIS [None]
  - HYPOTHYROIDISM [None]
  - LEUKOPLAKIA [None]
  - LIP AND/OR ORAL CAVITY CANCER [None]
  - LIP AND/OR ORAL CAVITY CANCER RECURRENT [None]
  - MALNUTRITION [None]
  - MUCOSAL INFLAMMATION [None]
  - NEOPLASM MALIGNANT [None]
  - NEOPLASM PROGRESSION [None]
  - OEDEMA MUCOSAL [None]
  - OESOPHAGEAL OBSTRUCTION [None]
  - ORAL DISORDER [None]
  - ORAL PAIN [None]
  - OSTEITIS [None]
  - OSTEOMYELITIS [None]
  - OSTEONECROSIS OF JAW [None]
  - OSTEORADIONECROSIS [None]
  - OTITIS MEDIA CHRONIC [None]
  - PATELLA FRACTURE [None]
  - PYOGENIC GRANULOMA [None]
  - RESPIRATORY FAILURE [None]
  - SPINAL OSTEOARTHRITIS [None]
  - SQUAMOUS CELL CARCINOMA [None]
  - THYROID NEOPLASM [None]
  - VAGINAL DISORDER [None]
